FAERS Safety Report 21947520 (Version 2)
Quarter: 2023Q1

REPORT INFORMATION
  Report Type: Other
  Country: GB (occurrence: GB)
  Receive Date: 20230202
  Receipt Date: 20230327
  Transmission Date: 20230418
  Serious: Yes (Death, Hospitalization, Other)
  Sender: FDA-Public Use
  Company Number: None

PATIENT
  Age: 79 Year
  Sex: Female
  Weight: 79 kg

DRUGS (35)
  1. FUROSEMIDE [Suspect]
     Active Substance: FUROSEMIDE
     Indication: Product used for unknown indication
     Dosage: 80 MILLIGRAM, UNKNOWN
     Route: 048
     Dates: start: 20170403
  2. FUROSEMIDE [Suspect]
     Active Substance: FUROSEMIDE
     Dosage: 80 MILLIGRAM, PRN, TABLET
     Route: 048
     Dates: start: 20170403
  3. ALFACALCIDOL [Suspect]
     Active Substance: ALFACALCIDOL
     Indication: Product used for unknown indication
     Dosage: 0.25 MICROGRAM, UNKNOWN; DOSAGE FORM: UNSPECIFIED
     Route: 048
     Dates: start: 20161213
  4. ALFACALCIDOL [Suspect]
     Active Substance: ALFACALCIDOL
     Dosage: 0.25 MICROGRAM, PRN
     Route: 048
     Dates: start: 20161213
  5. LINAGLIPTIN [Suspect]
     Active Substance: LINAGLIPTIN
     Indication: Product used for unknown indication
     Dosage: 5 MILLIGRAM; DOSAGE FORM: UNSPECIFIED
     Route: 048
     Dates: start: 20170403
  6. LINAGLIPTIN [Suspect]
     Active Substance: LINAGLIPTIN
     Dosage: 5 MILLIGRAM PER DAY
     Route: 048
     Dates: start: 20170403
  7. FOLIC ACID [Suspect]
     Active Substance: FOLIC ACID
     Indication: Product used for unknown indication
     Dosage: 5 MILLIGRAM, UNKNOWN, DOSAGE FORM: UNSPECIFIED
     Route: 048
     Dates: start: 20170324
  8. FOLIC ACID [Suspect]
     Active Substance: FOLIC ACID
     Dosage: 5 MILLIGRAM, PRN
     Route: 048
     Dates: start: 20170324
  9. ICODEXTRIN [Suspect]
     Active Substance: ICODEXTRIN
     Indication: Peritoneal dialysis
     Dosage: 2 LITER, QD
     Route: 033
     Dates: start: 20170330, end: 20170712
  10. ICODEXTRIN [Suspect]
     Active Substance: ICODEXTRIN
     Dosage: UNK (1/DAY)
     Route: 033
     Dates: start: 20170330, end: 20170712
  11. ICODEXTRIN [Suspect]
     Active Substance: ICODEXTRIN
     Dosage: 2 LITER
     Route: 033
     Dates: start: 20170330, end: 20170712
  12. INSULIN GLULISINE [Suspect]
     Active Substance: INSULIN GLULISINE
     Indication: Product used for unknown indication
     Dosage: 12 IU, TID (10IU) (36 IU PER DAY), DOSAGE FORM: UNKNOWN
     Route: 058
     Dates: start: 20170403
  13. DIANEAL [Suspect]
     Active Substance: CALCIUM CHLORIDE\DEXTROSE\MAGNESIUM CHLORIDE\SODIUM CHLORIDE\SODIUM LACTATE
     Indication: Peritoneal dialysis
     Dosage: 5 LITER, QD (DOSE FORM: SOLUTION FOR PERITONEAL DIALYSIS)
     Route: 033
     Dates: start: 20170330, end: 20170712
  14. DIANEAL [Suspect]
     Active Substance: CALCIUM CHLORIDE\DEXTROSE\MAGNESIUM CHLORIDE\SODIUM CHLORIDE\SODIUM LACTATE
     Dosage: UNK (1 (UNITS UNKNOWN)/DAY)
     Route: 033
     Dates: start: 20170330, end: 20170712
  15. DIANEAL [Suspect]
     Active Substance: CALCIUM CHLORIDE\DEXTROSE\MAGNESIUM CHLORIDE\SODIUM CHLORIDE\SODIUM LACTATE
     Dosage: 10 LITER
     Route: 065
     Dates: start: 20170330, end: 20170712
  16. DIANEAL [Suspect]
     Active Substance: CALCIUM CHLORIDE\DEXTROSE\MAGNESIUM CHLORIDE\SODIUM CHLORIDE\SODIUM LACTATE
     Dosage: 5 LITER
     Route: 033
     Dates: start: 20170330, end: 20170712
  17. DIANEAL [Suspect]
     Active Substance: CALCIUM CHLORIDE\DEXTROSE\MAGNESIUM CHLORIDE\SODIUM CHLORIDE\SODIUM LACTATE
     Dosage: 10 LITER PER DAY (5 LITERS, BID)
     Route: 033
     Dates: start: 20170330, end: 20170712
  18. DIANEAL [Suspect]
     Active Substance: CALCIUM CHLORIDE\DEXTROSE\MAGNESIUM CHLORIDE\SODIUM CHLORIDE\SODIUM LACTATE
     Dosage: 5 LITER, QD (DOSE FORM: SOLUTION FOR PERITONEAL DIALYSIS)
     Route: 033
     Dates: start: 20170330, end: 20170712
  19. DIANEAL [Suspect]
     Active Substance: CALCIUM CHLORIDE\DEXTROSE\MAGNESIUM CHLORIDE\SODIUM CHLORIDE\SODIUM LACTATE
     Dosage: UNK (1 (UNITS UNKNOWN)/DAY)
     Route: 033
     Dates: start: 20170330, end: 20170712
  20. DIANEAL [Suspect]
     Active Substance: CALCIUM CHLORIDE\DEXTROSE\MAGNESIUM CHLORIDE\SODIUM CHLORIDE\SODIUM LACTATE
     Dosage: 10 LITER PER DAY
     Route: 033
     Dates: start: 20170330, end: 20170712
  21. LEVEMIR [Suspect]
     Active Substance: INSULIN DETEMIR
     Indication: Product used for unknown indication
     Dosage: 10 INTERNATIONAL UNIT
     Route: 058
     Dates: start: 20170403
  22. LEVEMIR [Suspect]
     Active Substance: INSULIN DETEMIR
     Dosage: 10 INTERNATIONAL UNIT, PRN
     Route: 065
     Dates: start: 20170403
  23. EPREX [Suspect]
     Active Substance: ERYTHROPOIETIN
     Indication: Anaemia
     Dosage: 3000 IU, ONCE A WEEK, 3000 IU (INTERNATIONAL UNIT),1X A WEEK
     Route: 058
     Dates: start: 20170628
  24. EPREX [Suspect]
     Active Substance: ERYTHROPOIETIN
     Dosage: UNK
     Route: 065
  25. RAMIPRIL [Suspect]
     Active Substance: RAMIPRIL
     Indication: Product used for unknown indication
     Dosage: 2.5 MILLIGRAM; DOSAGE FORM: UNSPECIFIED
     Route: 048
     Dates: start: 20140711
  26. RAMIPRIL [Suspect]
     Active Substance: RAMIPRIL
     Dosage: 2.5 MILLIGRAM, PRN
     Route: 048
     Dates: start: 20140711
  27. NIFEDIPINE [Suspect]
     Active Substance: NIFEDIPINE
     Indication: Product used for unknown indication
     Dosage: 60 MILLIGRAM, UNKNOWN
     Route: 048
     Dates: start: 20091027
  28. NIFEDIPINE [Suspect]
     Active Substance: NIFEDIPINE
     Dosage: 60 MILLIGRAM
     Route: 048
     Dates: start: 20091027
  29. ENOXAPARIN SODIUM [Suspect]
     Active Substance: ENOXAPARIN SODIUM
     Indication: Product used for unknown indication
     Dosage: 20MG, (ON HEMODIALYISIS), DOSAGE FORM: UNSPECIFIED
     Route: 042
     Dates: start: 20170317
  30. ENGERIX-B [Suspect]
     Active Substance: HEPATITIS B VIRUS SUBTYPE ADW2 HBSAG SURFACE PROTEIN ANTIGEN
     Indication: Product used for unknown indication
     Dosage: 40  MICROGRAM, UNKNOWN, DOSAGE FORM: UNSPECIFIED
     Route: 030
     Dates: start: 20161003
  31. ENGERIX-B [Suspect]
     Active Substance: HEPATITIS B VIRUS SUBTYPE ADW2 HBSAG SURFACE PROTEIN ANTIGEN
     Dosage: 40 MICROGRAM
     Route: 065
     Dates: start: 20161003
  32. ENGERIX-B [Suspect]
     Active Substance: HEPATITIS B VIRUS SUBTYPE ADW2 HBSAG SURFACE PROTEIN ANTIGEN
     Dosage: 40 MICROGRAM, PRN
     Route: 030
     Dates: start: 20161003
  33. EXTRANEAL [Suspect]
     Active Substance: CALCIUM CHLORIDE\ICODEXTRIN\MAGNESIUM CHLORIDE\SODIUM CHLORIDE\SODIUM LACTATE
     Indication: Peritoneal dialysis
     Dosage: UNK UNK, QD ( (ICODEXTRIN 7.5%) SOLUTION FOR PERITONEAL DIALYSIS)
     Route: 033
     Dates: start: 20170330, end: 20170712
  34. SODIUM BICARBONATE [Suspect]
     Active Substance: SODIUM BICARBONATE
     Indication: Product used for unknown indication
     Dosage: 1 GRAM, QD, DOSAGE FORM: UNSPECIFIED
     Route: 048
     Dates: start: 20170403
  35. VENOFER [Concomitant]
     Active Substance: IRON SUCROSE
     Indication: Product used for unknown indication
     Dosage: 100 MILLIGRAM, ONCE A WEEK, DOSAGE FORM: UNKNOWN
     Route: 042
     Dates: start: 20170324

REACTIONS (1)
  - Cerebrovascular accident [Fatal]

NARRATIVE: CASE EVENT DATE: 20170712
